FAERS Safety Report 16439595 (Version 1)
Quarter: 2019Q2

REPORT INFORMATION
  Report Type: Report from Study
  Country: US (occurrence: US)
  Receive Date: 20190617
  Receipt Date: 20190617
  Transmission Date: 20190711
  Serious: Yes (Other)
  Sender: FDA-Public Use
  Company Number: US-ROCHE-1670648

PATIENT

DRUGS (3)
  1. SOFOSBUVIR [Suspect]
     Active Substance: SOFOSBUVIR
     Indication: HEPATITIS C
     Route: 065
  2. RIBAVIRIN. [Suspect]
     Active Substance: RIBAVIRIN
     Indication: HEPATITIS C
     Route: 065
  3. LEDIPASVIR [Suspect]
     Active Substance: LEDIPASVIR
     Indication: HEPATITIS C
     Route: 065

REACTIONS (11)
  - Anaemia [Unknown]
  - Hepatic failure [Unknown]
  - Headache [Unknown]
  - Hyperbilirubinaemia [Unknown]
  - Rash [Unknown]
  - Dyspepsia [Unknown]
  - Insomnia [Unknown]
  - Pruritus [Unknown]
  - Nausea [Unknown]
  - Haemoglobin decreased [Unknown]
  - Photosensitivity reaction [Unknown]
